FAERS Safety Report 4986998-1 (Version None)
Quarter: 2006Q2

REPORT INFORMATION
  Report Type: 
  Country: None (occurrence: None)
  Receive Date: 20060427
  Receipt Date: 20060427
  Transmission Date: 20061013
  Serious: Yes (Hospitalization)
  Sender: FDA-Public Use
  Company Number: None

PATIENT
  Sex: Male
  Weight: 71.2147 kg

DRUGS (4)
  1. IRESSA [Suspect]
     Indication: CHEMOTHERAPY
     Dosage: 250MG DAILY
     Route: 048
     Dates: start: 20060303, end: 20060412
  2. NEUPOGEN [Concomitant]
  3. ARANESP [Concomitant]
  4. KEFLEX [Concomitant]

REACTIONS (3)
  - ABDOMINAL DISTENSION [None]
  - DISEASE RECURRENCE [None]
  - OEDEMA PERIPHERAL [None]
